FAERS Safety Report 9524887 (Version 1)
Quarter: 2013Q3

REPORT INFORMATION
  Report Type: Spontaneous
  Country: US (occurrence: None)
  Receive Date: 20130912
  Receipt Date: 20130912
  Transmission Date: 20140515
  Serious: Yes (Hospitalization, Other)
  Sender: FDA-Public Use
  Company Number: None

PATIENT
  Age: 17 Year
  Sex: Female
  Weight: 74.84 kg

DRUGS (5)
  1. AZITHROMYCIN 250MG [Suspect]
     Indication: PHARYNGITIS STREPTOCOCCAL
  2. SEROQUEL [Concomitant]
  3. WELLBUTRIN [Concomitant]
  4. LEXAPRO [Concomitant]
  5. NOVOLOG [Concomitant]

REACTIONS (4)
  - Lip swelling [None]
  - Swelling face [None]
  - Pharyngeal oedema [None]
  - Dyspnoea [None]
